FAERS Safety Report 15703820 (Version 1)
Quarter: 2018Q4

REPORT INFORMATION
  Report Type: Spontaneous
  Country: US (occurrence: US)
  Receive Date: 20181210
  Receipt Date: 20181210
  Transmission Date: 20190205
  Serious: No
  Sender: FDA-Public Use
  Company Number: US-GLAXOSMITHKLINE-US2018219163

PATIENT
  Age: 75 Year
  Sex: Female

DRUGS (1)
  1. ABREVA [Suspect]
     Active Substance: DOCOSANOL
     Indication: ORAL HERPES
     Dosage: 5 TIMES A DAY FOR 11 TO 24 DAY TILL DAY
     Dates: start: 20181124

REACTIONS (4)
  - Drug ineffective [Unknown]
  - Incorrect product administration duration [Unknown]
  - Condition aggravated [Unknown]
  - Oral herpes [Unknown]
